FAERS Safety Report 7242233-5 (Version None)
Quarter: 2011Q1

REPORT INFORMATION
  Report Type: 
  Country: None (occurrence: None)
  Receive Date: 20110124
  Receipt Date: 20101119
  Transmission Date: 20110831
  Serious: Yes (Hospitalization)
  Sender: FDA-Public Use
  Company Number: CN-MERCK-1011USA03110

PATIENT
  Age: 31 Year
  Sex: Male

DRUGS (2)
  1. DECADRON [Suspect]
     Route: 048
     Dates: start: 20080515
  2. DEXAMETHASONE [Concomitant]
     Route: 042
     Dates: start: 20080501

REACTIONS (1)
  - BRONCHOPULMONARY ASPERGILLOSIS [None]
